FAERS Safety Report 16628971 (Version 2)
Quarter: 2019Q3

REPORT INFORMATION
  Report Type: Spontaneous
  Country: TW (occurrence: TW)
  Receive Date: 20190725
  Receipt Date: 20190828
  Transmission Date: 20191004
  Serious: Yes (Hospitalization, Other)
  Sender: FDA-Public Use
  Company Number: TW-PFIZER INC-2019180243

PATIENT
  Age: 45 Year
  Sex: Female

DRUGS (3)
  1. SUTENT [Suspect]
     Active Substance: SUNITINIB MALATE
     Dosage: 25 MG, QD
     Route: 048
     Dates: start: 20190819
  2. SUTENT [Suspect]
     Active Substance: SUNITINIB MALATE
     Indication: PANCREATIC NEUROENDOCRINE TUMOUR
     Dosage: 25 MG, 1X/DAY
     Route: 048
     Dates: start: 20190412
  3. SUTENT [Suspect]
     Active Substance: SUNITINIB MALATE
     Dosage: 25 MG, 2X/DAY
     Route: 048
     Dates: end: 20190812

REACTIONS (11)
  - Weight increased [Unknown]
  - Ascites [Not Recovered/Not Resolved]
  - Waist circumference increased [Unknown]
  - Pyrexia [Recovered/Resolved]
  - Lung infection [Recovered/Resolved]
  - Discomfort [Unknown]
  - Fatigue [Recovering/Resolving]
  - Menstruation delayed [Unknown]
  - Yellow skin [Recovering/Resolving]
  - Palmar-plantar erythrodysaesthesia syndrome [Recovered/Resolved]
  - Abdominal distension [Not Recovered/Not Resolved]

NARRATIVE: CASE EVENT DATE: 201904
